FAERS Safety Report 5031355-5 (Version None)
Quarter: 2006Q2

REPORT INFORMATION
  Report Type: 
  Country: None (occurrence: None)
  Receive Date: 20060616
  Receipt Date: 20060608
  Transmission Date: 20061013
  Serious: Yes (Death)
  Sender: FDA-Public Use
  Company Number: 2006-00734

PATIENT
  Age: 62 Year
  Sex: Female
  Weight: 70.0354 kg

DRUGS (1)
  1. VELCADE [Suspect]
     Indication: MULTIPLE MYELOMA
     Dosage: 1.20 MG/M2
     Dates: start: 20060321, end: 20060324

REACTIONS (7)
  - ACUTE PULMONARY OEDEMA [None]
  - CIRCULATORY COLLAPSE [None]
  - FLUID OVERLOAD [None]
  - METABOLIC ACIDOSIS [None]
  - PLATELET COUNT DECREASED [None]
  - RENAL FAILURE ACUTE [None]
  - SEPTIC SHOCK [None]
